FAERS Safety Report 9411774 (Version 3)
Quarter: 2013Q3

REPORT INFORMATION
  Report Type: Spontaneous
  Country: US (occurrence: US)
  Receive Date: 20130722
  Receipt Date: 20130806
  Transmission Date: 20140515
  Serious: No
  Sender: FDA-Public Use
  Company Number: US-PFIZER INC-2013208031

PATIENT
  Age: 71 Year
  Sex: Female
  Weight: 76.19 kg

DRUGS (11)
  1. PROTONIX [Suspect]
     Dosage: 40 MG, UNK
  2. REVLIMID [Suspect]
     Indication: PLASMA CELL MYELOMA
     Dosage: 15 MG, 1X/DAY
     Route: 048
     Dates: start: 200904
  3. REVLIMID [Suspect]
     Dosage: 10 MG, 1X/DAY
     Route: 048
     Dates: start: 201209
  4. REVLIMID [Suspect]
     Dosage: 10 MG, 1X/DAY
     Route: 048
     Dates: start: 201305
  5. AMITRIPTYLINE HYDROCHLORIDE [Concomitant]
     Dosage: 25 UNK, UNK
  6. JANUVIA [Concomitant]
     Dosage: 25 MG, UNK
     Route: 048
  7. VELCADE [Concomitant]
     Dosage: 3.5 MG, UNK
  8. VITAMIN E [Concomitant]
     Dosage: 1000 IU, UNK
  9. METFORMIN HYDROCHLORIDE/SITAGLIPTIN [Concomitant]
     Dosage: UNK
  10. VITAMIN D3 [Concomitant]
     Dosage: UNK
  11. OS-CAL D [Concomitant]
     Dosage: UNK

REACTIONS (4)
  - Diarrhoea [Recovered/Resolved]
  - Influenza [Unknown]
  - Neuropathy peripheral [Unknown]
  - Gastrointestinal disorder [Unknown]
